FAERS Safety Report 9503582 (Version 1)
Quarter: 2013Q1

REPORT INFORMATION
  Report Type: Spontaneous
  Country: US (occurrence: None)
  Receive Date: 20130130
  Receipt Date: 20130130
  Transmission Date: 20140127
  Serious: Yes (Hospitalization, Other)
  Sender: FDA-Public Use
  Company Number: US201212004576

PATIENT
  Age: 55 Year
  Sex: Male
  Weight: 108.8 kg

DRUGS (4)
  1. BYDUREON [Suspect]
     Indication: TYPE 2 DIABETES MELLITUS
     Dosage: 2 MG, WEEKLY (1/W), SUBCUTANEOUS
     Route: 058
     Dates: start: 2012
  2. BYETTA (EXENATIDE) PEN, DISPOSABLE [Suspect]
     Indication: TYPE 2 DIABETES MELLITUS
     Route: 058
  3. METFORMIN (METFORMIN) [Concomitant]
  4. ACE-INHIBITORS [Concomitant]

REACTIONS (1)
  - Pancreatitis [None]
